FAERS Safety Report 18763803 (Version 1)
Quarter: 2021Q1

REPORT INFORMATION
  Report Type: Spontaneous
  Country: BR (occurrence: BR)
  Receive Date: 20210120
  Receipt Date: 20210120
  Transmission Date: 20210419
  Serious: Yes (Other)
  Sender: FDA-Public Use
  Company Number: BR-OTSUKA-2021_001282

PATIENT
  Age: 74 Year
  Sex: Female

DRUGS (2)
  1. DACOGEN [Suspect]
     Active Substance: DECITABINE
     Indication: ACUTE MYELOID LEUKAEMIA
     Dosage: 20 MG/M2,1 CYCLICAL
     Route: 042
  2. VENETOCLAX. [Suspect]
     Active Substance: VENETOCLAX
     Indication: ACUTE MYELOID LEUKAEMIA
     Dosage: DAILY DOSE ESCALATION (100?200?400 MG/DAY) (400 MG,1 IN 1 D)
     Route: 065

REACTIONS (2)
  - Constipation [Unknown]
  - Urinary retention [Unknown]
